FAERS Safety Report 23020314 (Version 4)
Quarter: 2023Q4

REPORT INFORMATION
  Report Type: Spontaneous
  Country: GR (occurrence: GR)
  Receive Date: 20231003
  Receipt Date: 20231117
  Transmission Date: 20240109
  Serious: No
  Sender: FDA-Public Use
  Company Number: GR-PFIZER INC-PV202300152752

PATIENT
  Age: 8 Year
  Sex: Male
  Weight: 26 kg

DRUGS (1)
  1. GENOTROPIN [Suspect]
     Active Substance: SOMATROPIN
     Indication: Growth hormone deficiency
     Dosage: UNK
     Route: 058
     Dates: start: 20230622

REACTIONS (3)
  - Device use error [Unknown]
  - Device breakage [Unknown]
  - Drug dose omission by device [Unknown]
